FAERS Safety Report 8103246-4 (Version None)
Quarter: 2012Q1

REPORT INFORMATION
  Report Type: 
  Country: None (occurrence: None)
  Receive Date: 20120201
  Receipt Date: 20120125
  Transmission Date: 20120608
  Serious: Yes (Other)
  Sender: FDA-Public Use
  Company Number: FR-JNJFOC-20120112518

PATIENT
  Sex: Male
  Weight: 24 kg

DRUGS (2)
  1. RISPERDAL [Suspect]
     Indication: ANXIETY
     Route: 048
     Dates: start: 20120116, end: 20120116
  2. RISPERDAL [Suspect]
     Indication: LEARNING DISORDER
     Route: 048
     Dates: start: 20120116, end: 20120116

REACTIONS (5)
  - BALANCE DISORDER [None]
  - OVERDOSE [None]
  - SOMNOLENCE [None]
  - DRUG PRESCRIBING ERROR [None]
  - MEDICATION ERROR [None]
